FAERS Safety Report 7595681 (Version 5)
Quarter: 2013Q2

REPORT INFORMATION
  Report Type: Spontaneous
  Country: US (occurrence: US)
  Receive Date: 20100920
  Receipt Date: 20130514
  Transmission Date: 20140414
  Serious: Yes (Hospitalization, Other)
  Sender: FDA-Public Use
  Company Number: US-ASTRAZENECA-2010SE23525

PATIENT
  Age: 43 Year
  Sex: Female
  Weight: 113.4 kg

DRUGS (28)
  1. SEROQUEL [Suspect]
     Indication: POST-TRAUMATIC STRESS DISORDER
     Dosage: 25 MG THREE TIMES A DAY, 300 MG AT BED TIME
     Route: 048
     Dates: start: 200606
  2. SEROQUEL [Suspect]
     Indication: DEPRESSION
     Dosage: 25 MG THREE TIMES A DAY, 300 MG AT BED TIME
     Route: 048
     Dates: start: 200606
  3. SEROQUEL [Suspect]
     Indication: FLASHBACK
     Dosage: 25 MG THREE TIMES A DAY, 300 MG AT BED TIME
     Route: 048
     Dates: start: 200606
  4. SEROQUEL [Suspect]
     Indication: PANIC ATTACK
     Dosage: 25 MG THREE TIMES A DAY, 300 MG AT BED TIME
     Route: 048
     Dates: start: 200606
  5. SEROQUEL [Suspect]
     Indication: ANGER
     Dosage: 25 MG THREE TIMES A DAY, 300 MG AT BED TIME
     Route: 048
     Dates: start: 200606
  6. SEROQUEL [Suspect]
     Indication: POST-TRAUMATIC STRESS DISORDER
     Route: 048
  7. SEROQUEL [Suspect]
     Indication: DEPRESSION
     Route: 048
  8. SEROQUEL [Suspect]
     Indication: FLASHBACK
     Route: 048
  9. SEROQUEL [Suspect]
     Indication: PANIC ATTACK
     Route: 048
  10. SEROQUEL [Suspect]
     Indication: ANGER
     Route: 048
  11. SEROQUEL [Suspect]
     Indication: POST-TRAUMATIC STRESS DISORDER
     Route: 048
  12. SEROQUEL [Suspect]
     Indication: DEPRESSION
     Route: 048
  13. SEROQUEL [Suspect]
     Indication: FLASHBACK
     Route: 048
  14. SEROQUEL [Suspect]
     Indication: PANIC ATTACK
     Route: 048
  15. SEROQUEL [Suspect]
     Indication: ANGER
     Route: 048
  16. SEROQUEL [Suspect]
     Indication: POST-TRAUMATIC STRESS DISORDER
     Route: 048
  17. SEROQUEL [Suspect]
     Indication: DEPRESSION
     Route: 048
  18. SEROQUEL [Suspect]
     Indication: FLASHBACK
     Route: 048
  19. SEROQUEL [Suspect]
     Indication: PANIC ATTACK
     Route: 048
  20. SEROQUEL [Suspect]
     Indication: ANGER
     Route: 048
  21. THYROID PILL [Concomitant]
     Indication: THYROID DISORDER
     Dosage: EVERY MORNING
  22. AVIANNE [Concomitant]
     Indication: SLEEP DISORDER
  23. LANESTA [Concomitant]
     Indication: SLEEP DISORDER
  24. ALBUTERIN [Concomitant]
  25. EFFEXOR [Concomitant]
  26. XANAX [Concomitant]
  27. PERCOCET [Concomitant]
     Indication: PAIN
     Dosage: PRN
  28. ANTIBIOTICS [Concomitant]
     Dosage: PRN

REACTIONS (22)
  - Feeling of despair [Unknown]
  - Road traffic accident [Unknown]
  - Gallbladder injury [Unknown]
  - Panic attack [Unknown]
  - Malaise [Unknown]
  - Social avoidant behaviour [Unknown]
  - Gastroenteritis viral [Unknown]
  - Diarrhoea [Unknown]
  - Insomnia [Unknown]
  - Hunger [Unknown]
  - Limb crushing injury [Unknown]
  - Ear infection [Unknown]
  - Agitation [Unknown]
  - Anger [Unknown]
  - Weight increased [Unknown]
  - Vomiting [Unknown]
  - Feeling abnormal [Unknown]
  - Therapeutic response unexpected [Unknown]
  - Therapeutic response decreased [Unknown]
  - Off label use [Unknown]
  - Drug dose omission [Unknown]
  - Intentional drug misuse [Unknown]
